FAERS Safety Report 13036099 (Version 5)
Quarter: 2017Q3

REPORT INFORMATION
  Report Type: Report from Study
  Country: IT (occurrence: IT)
  Receive Date: 20161216
  Receipt Date: 20170803
  Transmission Date: 20171127
  Serious: Yes (Death, Hospitalization)
  Sender: FDA-Public Use
  Company Number: IT-ROCHE-1866243

PATIENT
  Age: 33 Year
  Sex: Male

DRUGS (4)
  1. VEMURAFENIB. [Suspect]
     Active Substance: VEMURAFENIB
     Indication: METASTATIC MALIGNANT MELANOMA
     Dosage: BLISTER PACK (AL/AL) 56 TABLET
     Route: 048
     Dates: start: 20150301, end: 20160228
  2. VEMURAFENIB. [Suspect]
     Active Substance: VEMURAFENIB
     Dosage: BLISTER PACK (AL/AL) 56 TABLET
     Route: 048
     Dates: start: 201602, end: 20161101
  3. MANNITOL. [Concomitant]
     Active Substance: MANNITOL
  4. COBIMETINIB. [Suspect]
     Active Substance: COBIMETINIB
     Indication: METASTATIC MALIGNANT MELANOMA
     Dosage: BLISTER PACK - 63 (3X21 )TABLETS
     Route: 048
     Dates: start: 20160201, end: 20161101

REACTIONS (10)
  - Central nervous system lesion [Recovering/Resolving]
  - Nodule [Recovering/Resolving]
  - Skin discolouration [Recovering/Resolving]
  - Dysarthria [Recovering/Resolving]
  - Disease progression [Fatal]
  - Inflammation [Recovering/Resolving]
  - Hyperkeratosis [Recovering/Resolving]
  - Seizure [Recovering/Resolving]
  - Hemiparesis [Recovering/Resolving]
  - Drug ineffective [Unknown]

NARRATIVE: CASE EVENT DATE: 201611
